FAERS Safety Report 7332822-1 (Version None)
Quarter: 2011Q1

REPORT INFORMATION
  Report Type: 
  Country: None (occurrence: None)
  Receive Date: 20110304
  Receipt Date: 20110221
  Transmission Date: 20110831
  Serious: Yes (Hospitalization)
  Sender: FDA-Public Use
  Company Number: PHHY2011CO15324

PATIENT
  Age: 36 Year
  Sex: Male

DRUGS (1)
  1. VOLTAREN [Suspect]
     Indication: TOOTHACHE
     Dosage: 75 MG, SINGLE DOSE
     Route: 030
     Dates: start: 20110206

REACTIONS (1)
  - INJECTION SITE HAEMATOMA [None]
